FAERS Safety Report 18213867 (Version 2)
Quarter: 2020Q3

REPORT INFORMATION
  Report Type: Report from Study
  Country: CA (occurrence: CA)
  Receive Date: 20200831
  Receipt Date: 20200928
  Transmission Date: 20201103
  Serious: Yes (Other)
  Sender: FDA-Public Use
  Company Number: PHHY2017CA017675

PATIENT
  Age: 16 Year
  Sex: Female
  Weight: 82 kg

DRUGS (8)
  1. DABRAFENIB [Suspect]
     Active Substance: DABRAFENIB
     Dosage: 75 MG, BID
     Route: 048
     Dates: start: 20170901, end: 20200919
  2. DABRAFENIB [Suspect]
     Active Substance: DABRAFENIB
     Dosage: 75 MG, BID
     Route: 048
     Dates: start: 20200720
  3. FLUOXETINE [Concomitant]
     Active Substance: FLUOXETINE HYDROCHLORIDE
     Indication: EPILEPSY
     Dosage: 200 MG, BID
     Route: 065
  4. FLUOXETINE [Concomitant]
     Active Substance: FLUOXETINE HYDROCHLORIDE
     Indication: DEPRESSION
  5. DABRAFENIB [Suspect]
     Active Substance: DABRAFENIB
     Indication: ASTROCYTOMA
     Dosage: UNK
     Route: 048
     Dates: start: 20160922
  6. DABRAFENIB [Suspect]
     Active Substance: DABRAFENIB
     Indication: METASTATIC MALIGNANT MELANOMA
     Dosage: 150 MG, BID
     Route: 048
     Dates: start: 20170901
  7. LEVETIRACETAM. [Concomitant]
     Active Substance: LEVETIRACETAM
     Indication: EPILEPSY
     Dosage: 2000 MG, BID
     Route: 065
  8. LACOSAMIDE. [Concomitant]
     Active Substance: LACOSAMIDE
     Indication: EPILEPSY
     Dosage: 200 MG, BID
     Route: 065

REACTIONS (22)
  - Gamma-glutamyltransferase increased [Recovered/Resolved]
  - Oedema peripheral [Not Recovered/Not Resolved]
  - Drug ineffective [Unknown]
  - Astrocytoma [Unknown]
  - Hyperuricaemia [Recovered/Resolved]
  - Photosensitivity reaction [Recovered/Resolved]
  - Arthralgia [Unknown]
  - Hyperkalaemia [Unknown]
  - Alopecia [Unknown]
  - Malignant neoplasm progression [Unknown]
  - Hypophosphataemia [Recovered/Resolved]
  - Metastases to meninges [Unknown]
  - Hot flush [Unknown]
  - Dermatitis [Recovered/Resolved]
  - Oropharyngeal pain [Recovered/Resolved]
  - Purpura [Recovered/Resolved]
  - Metastatic malignant melanoma [Unknown]
  - Gastrooesophageal reflux disease [Recovered/Resolved]
  - Amnesia [Unknown]
  - Fatigue [Unknown]
  - Rash [Unknown]
  - Vomiting [Recovered/Resolved]

NARRATIVE: CASE EVENT DATE: 20160930
